FAERS Safety Report 22121043 (Version 8)
Quarter: 2023Q2

REPORT INFORMATION
  Report Type: Spontaneous
  Country: CA (occurrence: CA)
  Receive Date: 20230321
  Receipt Date: 20230622
  Transmission Date: 20230721
  Serious: Yes (Other)
  Sender: FDA-Public Use
  Company Number: CA-PFIZER INC-202300118727

PATIENT
  Age: 55 Year
  Sex: Male
  Weight: 74.6 kg

DRUGS (3)
  1. XELJANZ [Suspect]
     Active Substance: TOFACITINIB CITRATE
     Indication: Colitis ulcerative
     Dosage: 10 MG, 2X/DAY, INDUCTION FOR 8 WEEKS THEN MAINTAINENCE 5MG BID
     Route: 048
     Dates: start: 20230313
  2. XELJANZ [Suspect]
     Active Substance: TOFACITINIB CITRATE
     Dosage: 5 MG, 2X/DAY
  3. PREDNISONE [Concomitant]
     Active Substance: PREDNISONE
     Dosage: 35 MG, 1X/DAY,CONTINUE WEANING BY 5MG EVERY WEEK UNTIL FINISHED

REACTIONS (7)
  - Rectal haemorrhage [Not Recovered/Not Resolved]
  - Haemorrhoids [Not Recovered/Not Resolved]
  - Therapeutic product effect incomplete [Unknown]
  - Bowel movement irregularity [Unknown]
  - Flatulence [Unknown]
  - Condition aggravated [Unknown]
  - Feeling abnormal [Unknown]

NARRATIVE: CASE EVENT DATE: 20230101
